FAERS Safety Report 10544071 (Version 1)
Quarter: 2014Q4

REPORT INFORMATION
  Report Type: Spontaneous
  Country: US (occurrence: None)
  Receive Date: 20141010
  Receipt Date: 20141010
  Transmission Date: 20150529
  Serious: Yes (Other)
  Sender: FDA-Public Use
  Company Number: 163-POMAL-14073054

PATIENT
  Age: 68 Year
  Sex: Male

DRUGS (7)
  1. ACYCLOVIR (ACICLOVIR) (ACICLOVIR) [Concomitant]
     Active Substance: ACYCLOVIR
  2. POMALYST [Suspect]
     Active Substance: POMALIDOMIDE
     Indication: PLASMA CELL MYELOMA
     Route: 048
     Dates: start: 20140711, end: 20140714
  3. CALCIUM PLUS VITAMIN D (CALCIUM D3 ^STADA^) [Concomitant]
  4. DOCUSATE [Suspect]
     Active Substance: DOCUSATE
  5. ASPIRIN. [Concomitant]
     Active Substance: ASPIRIN
  6. DECADRON [Concomitant]
     Active Substance: DEXAMETHASONE
  7. KYPROLIS [Concomitant]
     Active Substance: CARFILZOMIB

REACTIONS (1)
  - Rash pruritic [None]

NARRATIVE: CASE EVENT DATE: 20140715
